FAERS Safety Report 20461125 (Version 2)
Quarter: 2022Q1

REPORT INFORMATION
  Report Type: Report from Study
  Country: US (occurrence: US)
  Receive Date: 20220211
  Receipt Date: 20220214
  Transmission Date: 20220423
  Serious: No
  Sender: FDA-Public Use
  Company Number: US-HRAPH01-2021001449

PATIENT
  Sex: Female

DRUGS (3)
  1. LYSODREN [Suspect]
     Active Substance: MITOTANE
     Dosage: UP-TITRATED FROM 1500 MG PER DAY FOR 07 DAYS
     Route: 048
     Dates: start: 20211027
  2. Lexapro tab 10 mg [Concomitant]
  3. Xanax tab 0.5 mg [Concomitant]

REACTIONS (3)
  - Abdominal discomfort [Not Recovered/Not Resolved]
  - Fatigue [Not Recovered/Not Resolved]
  - Nausea [Not Recovered/Not Resolved]

NARRATIVE: CASE EVENT DATE: 20210101
